FAERS Safety Report 6854106-8 (Version None)
Quarter: 2010Q3

REPORT INFORMATION
  Report Type: 
  Country: None (occurrence: None)
  Receive Date: 20100717
  Receipt Date: 20071227
  Transmission Date: 20110219
  Serious: No
  Sender: FDA-Public Use
  Company Number: US-PFIZER INC-2008000331

PATIENT
  Sex: Female
  Weight: 56.8 kg

DRUGS (4)
  1. CHANTIX [Suspect]
     Indication: SMOKING CESSATION THERAPY
     Dates: start: 20071224
  2. YASMIN [Concomitant]
  3. PROPRANOLOL [Concomitant]
  4. LAMICTAL [Concomitant]

REACTIONS (3)
  - INCORRECT DOSE ADMINISTERED [None]
  - NAUSEA [None]
  - RESTLESSNESS [None]
